FAERS Safety Report 25358546 (Version 1)
Quarter: 2025Q2

REPORT INFORMATION
  Report Type: Spontaneous
  Country: US (occurrence: US)
  Receive Date: 20250526
  Receipt Date: 20250526
  Transmission Date: 20250716
  Serious: No
  Sender: MERCK SHARP & DOHME LLC
  Company Number: US-009507513-2285622

PATIENT
  Age: 3 Year
  Sex: Female

DRUGS (7)
  1. MEASLES-MUMPS-RUBELLA VIRUS VACCINE, LIVE [Suspect]
     Active Substance: MEASLES-MUMPS-RUBELLA VIRUS VACCINE, LIVE
     Indication: Prophylaxis
     Route: 030
     Dates: start: 20250310
  2. STERILE DILUENT (WATER) [Suspect]
     Active Substance: WATER
     Indication: Prophylaxis
     Route: 030
     Dates: start: 20250310
  3. IPOL [Suspect]
     Active Substance: POLIOVIRUS TYPE 1 ANTIGEN (FORMALDEHYDE INACTIVATED)\POLIOVIRUS TYPE 2 ANTIGEN (FORMALDEHYDE INACTIV
     Indication: Prophylaxis
     Route: 030
     Dates: start: 20250310
  4. PROQUAD [Concomitant]
     Active Substance: MEASLES VIRUS STRAIN ENDERS^ ATTENUATED EDMONSTON LIVE ANTIGEN\MUMPS VIRUS STRAIN B LEVEL JERYL LYNN
     Indication: Prophylaxis
     Route: 030
     Dates: start: 20250219
  5. STERILE DILUENT (WATER) [Concomitant]
     Active Substance: WATER
     Indication: Prophylaxis
     Route: 030
     Dates: start: 20250219
  6. Flulaval [Concomitant]
     Indication: Prophylaxis
     Route: 030
     Dates: start: 20250219
  7. PCV 20 [Concomitant]
     Indication: Prophylaxis
     Route: 030
     Dates: start: 20250219

REACTIONS (2)
  - Product storage error [Unknown]
  - No adverse event [Unknown]

NARRATIVE: CASE EVENT DATE: 20250310
